FAERS Safety Report 5937891-9 (Version None)
Quarter: 2008Q4

REPORT INFORMATION
  Report Type: 
  Country: None (occurrence: None)
  Receive Date: 20081031
  Receipt Date: 20081021
  Transmission Date: 20090506
  Serious: Yes (Other)
  Sender: FDA-Public Use
  Company Number: PL-ROCHE-591250

PATIENT
  Age: 3 Month
  Sex: Male

DRUGS (6)
  1. GANCICLOVIR [Suspect]
     Route: 065
  2. DEXAMETHASONE [Concomitant]
     Indication: IMMUNOSUPPRESSANT DRUG THERAPY
     Route: 065
  3. CYCLOSPORINE [Concomitant]
     Indication: PROPHYLAXIS AGAINST GRAFT VERSUS HOST DISEASE
     Route: 065
  4. FOSCAVIR [Concomitant]
     Route: 065
  5. FLUDARABINE PHOSPHATE [Concomitant]
     Indication: STEM CELL TRANSPLANT
     Route: 065
  6. MELPHALAN [Concomitant]
     Indication: STEM CELL TRANSPLANT
     Route: 065

REACTIONS (3)
  - ACUTE GRAFT VERSUS HOST DISEASE [None]
  - NEUTROPENIA [None]
  - THROMBOCYTOPENIA [None]
